FAERS Safety Report 9524765 (Version 1)
Quarter: 2013Q3

REPORT INFORMATION
  Report Type: Spontaneous
  Country: FR (occurrence: FR)
  Receive Date: 20130916
  Receipt Date: 20130916
  Transmission Date: 20140515
  Serious: Yes (Hospitalization)
  Sender: FDA-Public Use
  Company Number: PHHY2013FR101922

PATIENT
  Age: 7 Year
  Sex: Female
  Weight: 20 kg

DRUGS (4)
  1. TRILEPTAL [Suspect]
     Indication: EPILEPSY
     Dosage: 10 MG/KG (200 MG), QD
     Route: 048
     Dates: start: 20130826, end: 20130829
  2. TRILEPTAL [Suspect]
     Dosage: 20 MG/KG (400 MG), QD
     Route: 048
     Dates: start: 20130829, end: 20130831
  3. MICROPAKINE [Concomitant]
     Dosage: UNK UKN, UNK
     Dates: start: 201308
  4. URBANYL [Concomitant]
     Dosage: UNK UKN, UNK
     Dates: start: 201308

REACTIONS (3)
  - Oedema [Recovered/Resolved]
  - Rash maculo-papular [Recovering/Resolving]
  - Pruritus [Recovered/Resolved]
